FAERS Safety Report 20093656 (Version 1)
Quarter: 2021Q4

REPORT INFORMATION
  Report Type: Report from Study
  Country: BR (occurrence: BR)
  Receive Date: 20211121
  Receipt Date: 20211121
  Transmission Date: 20220303
  Serious: Yes (Other)
  Sender: FDA-Public Use
  Company Number: BR-NOVARTISPH-NVSC2021BR263894

PATIENT
  Age: 40 Year
  Sex: Female

DRUGS (2)
  1. ANASTROZOLE [Suspect]
     Active Substance: ANASTROZOLE
     Indication: Invasive ductal breast carcinoma
     Dosage: UNK
     Route: 065
  2. CAPECITABINE [Concomitant]
     Active Substance: CAPECITABINE
     Indication: Product used for unknown indication
     Dosage: UNK
     Route: 065

REACTIONS (5)
  - Hormone receptor positive breast cancer [Unknown]
  - Myelosuppression [Unknown]
  - Adenocarcinoma [Unknown]
  - Carbohydrate antigen 15-3 increased [Unknown]
  - Metastases to bone [Unknown]

NARRATIVE: CASE EVENT DATE: 20190401
